FAERS Safety Report 4713732-2 (Version None)
Quarter: 2005Q3

REPORT INFORMATION
  Report Type: 
  Country: None (occurrence: None)
  Receive Date: 20050712
  Receipt Date: 20050705
  Transmission Date: 20060218
  Serious: Yes (Hospitalization)
  Sender: FDA-Public Use
  Company Number: COV2-2005-00096

PATIENT
  Age: 79 Year
  Sex: Female
  Weight: 50.5 kg

DRUGS (4)
  1. FOSRENOL [Suspect]
     Indication: HYPERPHOSPHATAEMIA
     Dosage: 750 MG, 3X/DAY; TID, ORAL
     Route: 048
     Dates: start: 20050530
  2. ATACAND [Concomitant]
  3. DIGOXIN [Concomitant]
  4. METOPROLOL TARTRATE [Concomitant]

REACTIONS (5)
  - CEREBROVASCULAR ACCIDENT [None]
  - DIALYSIS [None]
  - HEMIPARESIS [None]
  - NAUSEA [None]
  - VOMITING [None]
